FAERS Safety Report 24126266 (Version 4)
Quarter: 2024Q4

REPORT INFORMATION
  Report Type: Spontaneous
  Country: CH (occurrence: CH)
  Receive Date: 20240723
  Receipt Date: 20241224
  Transmission Date: 20250115
  Serious: Yes (Other)
  Sender: JOHNSON AND JOHNSON
  Company Number: CH-VIIV HEALTHCARE LIMITED-CH2024EME089080

PATIENT
  Age: 48 Year
  Sex: Male
  Weight: 83 kg

DRUGS (3)
  1. RILPIVIRINE [Suspect]
     Active Substance: RILPIVIRINE
     Indication: Antiretroviral therapy
     Dosage: 900 MG, Q2M (6 INJECTIONS)
     Route: 030
     Dates: start: 20230509, end: 20240710
  2. VOCABRIA [Suspect]
     Active Substance: CABOTEGRAVIR SODIUM
     Indication: Antiviral treatment
     Dosage: 600 MG, Q2M (6 INJECTIONS)
     Route: 030
     Dates: start: 20230509, end: 20240710
  3. BIKTARVY [Concomitant]
     Active Substance: BICTEGRAVIR SODIUM\EMTRICITABINE\TENOFOVIR ALAFENAMIDE FUMARATE
     Indication: Product used for unknown indication
     Dosage: UNK

REACTIONS (5)
  - Asthmatic crisis [Recovered/Resolved]
  - Chills [Recovered/Resolved]
  - Myalgia [Recovered/Resolved]
  - Influenza like illness [Recovered/Resolved]
  - Arthralgia [Recovered/Resolved]

NARRATIVE: CASE EVENT DATE: 20230701
